FAERS Safety Report 6759898-4 (Version None)
Quarter: 2010Q2

REPORT INFORMATION
  Report Type: 
  Country: None (occurrence: None)
  Receive Date: 20100608
  Receipt Date: 20100524
  Transmission Date: 20101027
  Serious: Yes (Death)
  Sender: FDA-Public Use
  Company Number: JP-BAYER-201010822BYL

PATIENT
  Age: 70 Year
  Sex: Male

DRUGS (4)
  1. FLUDARA [Suspect]
     Indication: CORD BLOOD TRANSPLANT THERAPY
     Dosage: HLA:TWO LOCI INCOMPATIBILITY
     Route: 065
  2. MELPHALAN HYDROCHLORIDE [Concomitant]
     Indication: CORD BLOOD TRANSPLANT THERAPY
     Dosage: HLA:TWO LOCI INCOMPATIBILITY
     Route: 065
  3. TACROLIMUS HYDRATE [Concomitant]
     Indication: CORD BLOOD TRANSPLANT THERAPY
     Dosage: HLA:TWO LOCI INCOMPATIBILITY
     Route: 065
  4. METHOTREXATE [Concomitant]
     Indication: CORD BLOOD TRANSPLANT THERAPY
     Dosage: HLA:TWO LOCI INCOMPATIBILITY
     Route: 065

REACTIONS (2)
  - CYTOMEGALOVIRUS VIRAEMIA [None]
  - ORGANISING PNEUMONIA [None]
